FAERS Safety Report 4960830-4 (Version None)
Quarter: 2006Q2

REPORT INFORMATION
  Report Type: 
  Country: None (occurrence: None)
  Receive Date: 20060403
  Receipt Date: 20060322
  Transmission Date: 20061013
  Serious: Yes (Other)
  Sender: FDA-Public Use
  Company Number: AR-ROCHE-441796

PATIENT
  Age: 20 Year
  Sex: Female

DRUGS (1)
  1. ROACCUTANE [Suspect]
     Indication: ACNE
     Route: 048
     Dates: start: 20060315, end: 20060315

REACTIONS (2)
  - NO ADVERSE EFFECT [None]
  - PREGNANCY [None]
